FAERS Safety Report 8771496 (Version 6)
Quarter: 2013Q1

REPORT INFORMATION
  Report Type: Spontaneous
  Country: JP (occurrence: JP)
  Receive Date: 20120906
  Receipt Date: 20130116
  Transmission Date: 20140127
  Serious: Yes (Hospitalization, Disabling)
  Sender: FDA-Public Use
  Company Number: JP-GLAXOSMITHKLINE-B0827809A

PATIENT
  Age: 91 Year
  Sex: Female
  Weight: 39 kg

DRUGS (4)
  1. GABAPENTIN ENACARBIL [Suspect]
     Indication: RESTLESS LEGS SYNDROME
     Dosage: 300MG PER DAY
     Route: 048
     Dates: start: 20120710, end: 20120711
  2. ADALAT LA [Concomitant]
     Indication: HYPERTENSION
     Route: 065
     Dates: start: 20120626
  3. LIMAPROST ALFADEX [Concomitant]
     Indication: LUMBAR SPINAL STENOSIS
     Route: 065
     Dates: start: 20120626
  4. PREMINENT [Concomitant]
     Indication: HYPERTENSION
     Route: 065
     Dates: start: 20120626

REACTIONS (4)
  - Renal impairment [Recovering/Resolving]
  - Pneumonia [Unknown]
  - Hypoxia [Unknown]
  - Oedema [Recovering/Resolving]
